FAERS Safety Report 5708372-2 (Version None)
Quarter: 2008Q2

REPORT INFORMATION
  Report Type: 
  Country: None (occurrence: None)
  Receive Date: 20080417
  Receipt Date: 20080414
  Transmission Date: 20081010
  Serious: Yes (Life-Threatening)
  Sender: FDA-Public Use
  Company Number: TR-ASTRAZENECA-2008SE00094

PATIENT
  Age: 48 Year
  Sex: Male

DRUGS (3)
  1. ROSUVASTATIN [Suspect]
     Route: 048
     Dates: start: 20071001, end: 20080101
  2. BELOC [Suspect]
     Dates: start: 20071001
  3. ACETYLSALICYLIC ACID SRT [Concomitant]
     Dates: start: 20071001

REACTIONS (1)
  - TORSADE DE POINTES [None]
